FAERS Safety Report 16400308 (Version 1)
Quarter: 2019Q2

REPORT INFORMATION
  Report Type: Spontaneous
  Country: US (occurrence: US)
  Receive Date: 20190606
  Receipt Date: 20190606
  Transmission Date: 20190711
  Serious: No
  Sender: FDA-Public Use
  Company Number: US-ALLERGAN-1832619US

PATIENT
  Sex: Female
  Weight: 98.55 kg

DRUGS (2)
  1. KYBELLA [Suspect]
     Active Substance: DEOXYCHOLIC ACID
     Dosage: 4 ML, SINGLE (PER INJECTION SITE 0.2 ML)
     Route: 058
     Dates: start: 20170804, end: 20170804
  2. KYBELLA [Suspect]
     Active Substance: DEOXYCHOLIC ACID
     Indication: FAT TISSUE INCREASED
     Dosage: 4 ML, SINGLE
     Route: 058
     Dates: start: 20171006, end: 20171006

REACTIONS (1)
  - Injection site induration [Not Recovered/Not Resolved]
